FAERS Safety Report 13936983 (Version 1)
Quarter: 2017Q3

REPORT INFORMATION
  Report Type: Spontaneous
  Country: US (occurrence: US)
  Receive Date: 20170905
  Receipt Date: 20170905
  Transmission Date: 20171127
  Serious: No
  Sender: FDA-Public Use
  Company Number: US-BAYER-2017-158971

PATIENT
  Age: 73 Year
  Sex: Female
  Weight: 51.25 kg

DRUGS (4)
  1. DULCOLAX (DOCUSATE SODIUM) [Concomitant]
     Active Substance: DOCUSATE SODIUM
  2. LINZESS [Concomitant]
     Active Substance: LINACLOTIDE
     Dosage: UNK
  3. MIRALAX [Suspect]
     Active Substance: POLYETHYLENE GLYCOL 3350
     Indication: GASTROINTESTINAL DISORDER
     Dosage: 1 DF, MORNING AND EVENING DOSE
     Route: 047
     Dates: start: 20170808, end: 20170817
  4. MIRALAX [Suspect]
     Active Substance: POLYETHYLENE GLYCOL 3350
     Indication: GASTROINTESTINAL DISORDER
     Dosage: 1 DF, MORNIGN AND EVENING
     Route: 048
     Dates: start: 20170705

REACTIONS (14)
  - Therapeutic product ineffective [Unknown]
  - Off label use [Unknown]
  - Inappropriate prescribing [Unknown]
  - Product use issue [Unknown]
  - Drug administered at inappropriate site [None]
  - Expired product administered [Unknown]
  - Bowel movement irregularity [Unknown]
  - Inappropriate prescribing [Unknown]
  - Inappropriate prescribing [Unknown]
  - Wrong technique in product usage process [Unknown]
  - Drug ineffective [Unknown]
  - Constipation [Unknown]
  - Off label use [Unknown]
  - Wrong technique in product usage process [Unknown]

NARRATIVE: CASE EVENT DATE: 20170705
